FAERS Safety Report 11742216 (Version 1)
Quarter: 2015Q4

REPORT INFORMATION
  Report Type: Spontaneous
  Country: US (occurrence: None)
  Receive Date: 20151113
  Receipt Date: 20151113
  Transmission Date: 20160304
  Serious: Yes (Other)
  Sender: FDA-Public Use
  Company Number: None

PATIENT
  Age: 30 Year
  Sex: Female
  Weight: 106.14 kg

DRUGS (2)
  1. NASONEX [Suspect]
     Active Substance: MOMETASONE FUROATE
     Indication: SEASONAL ALLERGY
     Dosage: 5 YEARS, ONCE DAILY, NASAL?2 SPRAYS IN EACH NOTRIL
     Route: 045
  2. NASONEX [Suspect]
     Active Substance: MOMETASONE FUROATE
     Indication: HYPERSENSITIVITY
     Dosage: 5 YEARS, ONCE DAILY, NASAL?2 SPRAYS IN EACH NOTRIL
     Route: 045

REACTIONS (2)
  - Osteonecrosis [None]
  - Adrenal insufficiency [None]

NARRATIVE: CASE EVENT DATE: 20151106
